FAERS Safety Report 8982982 (Version 2)
Quarter: 2013Q2

REPORT INFORMATION
  Report Type: Spontaneous
  Country: CH (occurrence: CH)
  Receive Date: 20121221
  Receipt Date: 20130424
  Transmission Date: 20140414
  Serious: Yes (Hospitalization)
  Sender: FDA-Public Use
  Company Number: CH-ABBOTT-12P-151-1025111-00

PATIENT
  Age: 34 Year
  Sex: Male

DRUGS (10)
  1. RITONAVIR [Suspect]
     Indication: HIV INFECTION
     Route: 065
     Dates: start: 20121002
  2. SEROQUEL [Suspect]
     Indication: AFFECTIVE DISORDER
     Route: 048
     Dates: start: 20120925, end: 20121014
  3. SULFADIAZINE [Suspect]
     Indication: ENCEPHALITIS
     Route: 048
     Dates: start: 201209, end: 20121005
  4. DARAPRIM [Suspect]
     Indication: CEREBRAL TOXOPLASMOSIS
     Route: 048
     Dates: start: 20120920
  5. LEVETIRACETAM [Concomitant]
     Indication: PRODUCT USED FOR UNKNOWN INDICATION
     Dates: start: 20120915, end: 20121026
  6. CALCIUM FOLINATE [Concomitant]
     Indication: PRODUCT USED FOR UNKNOWN INDICATION
     Dates: start: 20120920
  7. DARUNAVIR [Concomitant]
     Indication: PRODUCT USED FOR UNKNOWN INDICATION
     Dates: start: 20121002
  8. ABACAVIR SO4 + LAMIVUDINE [Concomitant]
     Indication: PRODUCT USED FOR UNKNOWN INDICATION
     Dates: start: 20121005
  9. COMBIVIR [Concomitant]
     Indication: PRODUCT USED FOR UNKNOWN INDICATION
     Dates: start: 20121002, end: 20121005
  10. CLINDAMYCIN [Concomitant]
     Indication: PRODUCT USED FOR UNKNOWN INDICATION
     Dates: start: 20121005, end: 20121026

REACTIONS (3)
  - Pancytopenia [Recovering/Resolving]
  - Liver injury [Recovering/Resolving]
  - Drug level decreased [Unknown]
